FAERS Safety Report 14518152 (Version 2)
Quarter: 2018Q1

REPORT INFORMATION
  Report Type: Spontaneous
  Country: US (occurrence: US)
  Receive Date: 20180212
  Receipt Date: 20180214
  Transmission Date: 20180509
  Serious: No
  Sender: FDA-Public Use
  Company Number: US-TEVA-2018-US-852045

PATIENT
  Sex: Female

DRUGS (1)
  1. DULOXETINE. [Suspect]
     Active Substance: DULOXETINE
     Indication: DEPRESSION
     Dates: start: 2016

REACTIONS (3)
  - Irritability [Unknown]
  - Drug ineffective [Unknown]
  - Crying [Unknown]

NARRATIVE: CASE EVENT DATE: 20180110
